FAERS Safety Report 6416069-9 (Version None)
Quarter: 2009Q4

REPORT INFORMATION
  Report Type: 
  Country: None (occurrence: None)
  Receive Date: 20091027
  Receipt Date: 20091021
  Transmission Date: 20100525
  Serious: Yes (Other)
  Sender: FDA-Public Use
  Company Number: NL-ELI_LILLY_AND_COMPANY-NL200910005529

PATIENT
  Sex: Female

DRUGS (6)
  1. ALIMTA [Suspect]
     Dosage: UNK, UNKNOWN
     Route: 065
  2. CISPLATIN [Concomitant]
     Dosage: UNK, UNKNOWN
     Route: 065
  3. OMEPRAZOLE [Concomitant]
     Dosage: UNK, UNKNOWN
     Route: 065
  4. DEXAMETHASONE [Concomitant]
     Dosage: UNK, UNKNOWN
     Route: 065
  5. TEMAZEPAM [Concomitant]
     Dosage: UNK, UNKNOWN
     Route: 065
  6. FOLIC ACID [Concomitant]
     Dosage: UNK, UNKNOWN
     Route: 065

REACTIONS (1)
  - CEREBRAL INFARCTION [None]
